FAERS Safety Report 19712028 (Version 1)
Quarter: 2021Q3

REPORT INFORMATION
  Report Type: Spontaneous
  Country: US (occurrence: US)
  Receive Date: 20210817
  Receipt Date: 20210817
  Transmission Date: 20211014
  Serious: Yes (Congenital Anomaly, Other)
  Sender: FDA-Public Use
  Company Number: US-PURDUE-USA-2020-0276091

PATIENT
  Sex: Male

DRUGS (1)
  1. HYDROMORPHONE TABLETS [Suspect]
     Active Substance: HYDROMORPHONE
     Indication: PRODUCT USED FOR UNKNOWN INDICATION
     Dosage: UNKNOWN
     Route: 064

REACTIONS (8)
  - Spina bifida [Unknown]
  - Congenital anomaly [Unknown]
  - Learning disability [Unknown]
  - Developmental delay [Unknown]
  - Cardiac disorder [Unknown]
  - Foetal exposure during pregnancy [Recovered/Resolved]
  - Drug dependence [Unknown]
  - Drug withdrawal syndrome neonatal [Unknown]
